FAERS Safety Report 9256435 (Version 3)
Quarter: 2013Q3

REPORT INFORMATION
  Report Type: Report from Study
  Country: BR (occurrence: BR)
  Receive Date: 20130426
  Receipt Date: 20130821
  Transmission Date: 20140515
  Serious: Yes (Other)
  Sender: FDA-Public Use
  Company Number: BR-ROCHE-1218626

PATIENT
  Age: 68 Year
  Sex: Female
  Weight: 85 kg

DRUGS (12)
  1. ACTEMRA [Suspect]
     Indication: RHEUMATOID ARTHRITIS
     Dosage: LAST INFUSION OF TOCILIZUMAB: 08/APR/2013
     Route: 042
     Dates: start: 201210, end: 20130408
  2. ULTRACET [Concomitant]
     Indication: PAIN
  3. DIOVAN [Concomitant]
     Indication: HYPERTENSION
  4. DIOSMIN [Concomitant]
     Indication: HYPERTENSION
  5. VERAPAMIL [Concomitant]
     Indication: HYPERTENSION
  6. SYNTHROID [Concomitant]
     Indication: HYPOTHYROIDISM
  7. DAFLON (BRAZIL) [Concomitant]
     Indication: ANGIOPATHY
  8. FLANCOX [Concomitant]
     Indication: RHEUMATOID ARTHRITIS
  9. METHOTREXATE [Concomitant]
     Indication: RHEUMATOID ARTHRITIS
  10. OMEGA 3 [Concomitant]
  11. PREDNISONE [Concomitant]
     Indication: RHEUMATOID ARTHRITIS
  12. FLANCOX [Concomitant]
     Indication: RHEUMATOID ARTHRITIS

REACTIONS (7)
  - Embolism [Not Recovered/Not Resolved]
  - Thrombosis [Recovering/Resolving]
  - Pulmonary oedema [Unknown]
  - Local swelling [Recovering/Resolving]
  - Local swelling [Recovering/Resolving]
  - Fatigue [Not Recovered/Not Resolved]
  - Pulmonary thrombosis [Not Recovered/Not Resolved]
